FAERS Safety Report 8831800 (Version 1)
Quarter: 2012Q4

REPORT INFORMATION
  Report Type: 
  Country: US (occurrence: US)
  Receive Date: 20121009
  Receipt Date: 20121009
  Transmission Date: 20130627
  Serious: Yes (Death, Hospitalization)
  Sender: FDA-Public Use
  Company Number: US-ROCHE-1137711

PATIENT
  Sex: Male

DRUGS (14)
  1. RITUXAN [Suspect]
     Indication: CHRONIC LYMPHOCYTIC LEUKAEMIA
     Route: 042
  2. PREDNISOLONE [Concomitant]
  3. CYTOXAN [Concomitant]
  4. VINCRISTINE [Concomitant]
  5. CIPROFLOXACIN [Concomitant]
  6. ALLOPURINOL [Concomitant]
  7. ACV [Concomitant]
  8. CYCLOSPORIN [Concomitant]
  9. DECADRON [Concomitant]
  10. IMMUNOGLOBULIN [Concomitant]
  11. CHLORAMBUCIL [Concomitant]
  12. CAMPATH [Concomitant]
  13. LEVOQUIN [Concomitant]
  14. FLAGYL [Concomitant]

REACTIONS (13)
  - Death [Fatal]
  - Haemolytic anaemia [Unknown]
  - Thrombocytopenia [Unknown]
  - Chest wall abscess [Unknown]
  - Breath sounds abnormal [Unknown]
  - Rhonchi [Unknown]
  - Oedema [Unknown]
  - Weight decreased [Unknown]
  - Hyperglycaemia [Unknown]
  - Fatigue [Unknown]
  - Pyrexia [Unknown]
  - Pleural effusion [Unknown]
  - Dyspnoea [Unknown]
